FAERS Safety Report 20113089 (Version 1)
Quarter: 2021Q4

REPORT INFORMATION
  Report Type: Spontaneous
  Country: IN (occurrence: IN)
  Receive Date: 20211125
  Receipt Date: 20211125
  Transmission Date: 20220303
  Serious: Yes (Death, Hospitalization, Other)
  Sender: FDA-Public Use
  Company Number: IN-GILEAD-2021-0556797

PATIENT
  Age: 41 Year
  Sex: Male

DRUGS (2)
  1. AMPHOTERICIN B [Suspect]
     Active Substance: AMPHOTERICIN B
     Indication: Mucormycosis
     Dosage: 5 MG/KG, UNKNOWN FREQ. (STARTED ON DAY 26 OF HOSPITALIZATION)
     Route: 042
  2. COLISTIN [Concomitant]
     Active Substance: COLISTIN
     Indication: Pneumonia necrotising
     Dosage: UNK UNK, UNKNOWN FREQ.
     Route: 042

REACTIONS (2)
  - Disseminated mucormycosis [Fatal]
  - Drug ineffective [Unknown]
